FAERS Safety Report 12181620 (Version 1)
Quarter: 2016Q1

REPORT INFORMATION
  Report Type: Spontaneous
  Country: US (occurrence: US)
  Receive Date: 20160315
  Receipt Date: 20160315
  Transmission Date: 20160526
  Serious: No
  Sender: FDA-Public Use
  Company Number: US-IMPAX LABORATORIES, INC-2015-IPXL-01139

PATIENT
  Age: 38 Year
  Sex: Female
  Weight: 48.98 kg

DRUGS (3)
  1. LORATADINE AND PSEUDOEPHEDRINE SULFATE (OTC) [Suspect]
     Active Substance: LORATADINE\PSEUDOEPHEDRINE SULFATE
     Dosage: TWO TABLETS, SINGLE
     Route: 048
     Dates: start: 20151007
  2. FLONASE [Concomitant]
     Active Substance: FLUTICASONE PROPIONATE
     Indication: PRODUCT USED FOR UNKNOWN INDICATION
     Route: 065
  3. LORATADINE AND PSEUDOEPHEDRINE SULFATE (OTC) [Suspect]
     Active Substance: LORATADINE\PSEUDOEPHEDRINE SULFATE
     Indication: SEASONAL ALLERGY
     Dosage: ONE TABLETS
     Route: 048
     Dates: start: 2012

REACTIONS (3)
  - Incorrect dose administered [Unknown]
  - Off label use [Unknown]
  - Accidental overdose [None]

NARRATIVE: CASE EVENT DATE: 20151007
